FAERS Safety Report 17283764 (Version 2)
Quarter: 2020Q1

REPORT INFORMATION
  Report Type: Spontaneous
  Country: IL (occurrence: IL)
  Receive Date: 20200117
  Receipt Date: 20200320
  Transmission Date: 20200409
  Serious: Yes (Other)
  Sender: FDA-Public Use
  Company Number: IL-ACTELION-A-CH2019-188241

PATIENT
  Age: 60 Year
  Sex: Female

DRUGS (9)
  1. LOSEC [Concomitant]
     Active Substance: OMEPRAZOLE
  2. UPTRAVI [Suspect]
     Active Substance: SELEXIPAG
     Dosage: 600 MCG, BID
     Route: 048
     Dates: start: 20190318
  3. CARDILOC [Concomitant]
     Active Substance: BISOPROLOL FUMARATE
  4. SYMBICORT [Concomitant]
     Active Substance: BUDESONIDE\FORMOTEROL FUMARATE DIHYDRATE
  5. UPTRAVI [Suspect]
     Active Substance: SELEXIPAG
     Indication: PULMONARY ARTERIAL HYPERTENSION
     Dosage: 400 MCG, BID
     Route: 048
     Dates: start: 20190304, end: 20191118
  6. REVATIO [Concomitant]
     Active Substance: SILDENAFIL CITRATE
  7. CARTIA [Concomitant]
  8. FUSID [Concomitant]
  9. TARDYFERON [Concomitant]
     Active Substance: FERROUS SULFATE

REACTIONS (7)
  - Headache [Recovering/Resolving]
  - Swelling [Recovered/Resolved]
  - Hypersensitivity [Recovered/Resolved]
  - Dyspnoea [Recovered/Resolved]
  - Asphyxia [Recovered/Resolved]
  - Asthenia [Recovering/Resolving]
  - Nausea [Recovering/Resolving]

NARRATIVE: CASE EVENT DATE: 20190319
